FAERS Safety Report 9837084 (Version 1)
Quarter: 2014Q1

REPORT INFORMATION
  Report Type: Report from Study
  Country: US (occurrence: US)
  Receive Date: 20140123
  Receipt Date: 20140123
  Transmission Date: 20141002
  Serious: Yes (Other)
  Sender: FDA-Public Use
  Company Number: US-ROCHE-1332291

PATIENT
  Sex: Female

DRUGS (2)
  1. HERCEPTIN [Suspect]
     Indication: BREAST CANCER
     Route: 065
  2. PERJETA [Suspect]
     Indication: BREAST CANCER
     Route: 065

REACTIONS (10)
  - Skin discolouration [Unknown]
  - Rash erythematous [Unknown]
  - Pruritus [Unknown]
  - Alopecia [Unknown]
  - Dry mouth [Unknown]
  - Cough [Unknown]
  - Epistaxis [Unknown]
  - Weight decreased [Unknown]
  - Back pain [Unknown]
  - Skin cancer [Unknown]
